FAERS Safety Report 8965010 (Version 2)
Quarter: 2013Q1

REPORT INFORMATION
  Report Type: Spontaneous
  Country: US (occurrence: US)
  Receive Date: 20121213
  Receipt Date: 20130318
  Transmission Date: 20140127
  Serious: Yes (Death, Hospitalization, Other)
  Sender: FDA-Public Use
  Company Number: US-TEVA-375204USA

PATIENT
  Sex: Male

DRUGS (2)
  1. CLOZAPINE [Suspect]
     Indication: SCHIZOPHRENIA
     Dates: start: 2003
  2. FLUPHENAZINE DECANOATE [Concomitant]
     Dosage: Q 2 WEEKS
     Route: 030
     Dates: start: 201204

REACTIONS (2)
  - Aspiration [Fatal]
  - Myocardial infarction [Unknown]
